FAERS Safety Report 9918281 (Version 1)
Quarter: 2014Q1

REPORT INFORMATION
  Report Type: Report from Study
  Country: US (occurrence: US)
  Receive Date: 20140224
  Receipt Date: 20140224
  Transmission Date: 20141002
  Serious: Yes (Hospitalization)
  Sender: FDA-Public Use
  Company Number: US-ROCHE-1353354

PATIENT
  Sex: Female

DRUGS (2)
  1. AVASTIN [Suspect]
     Indication: BRAIN NEOPLASM MALIGNANT
     Dosage: WITH NORMAL SALINE
     Route: 042
  2. RADIATION THERAPY [Concomitant]

REACTIONS (7)
  - Platelet count decreased [Unknown]
  - White blood cell count decreased [Unknown]
  - Blood count abnormal [Unknown]
  - Dysgraphia [Unknown]
  - Aphasia [Unknown]
  - Nausea [Unknown]
  - Fatigue [Unknown]
